FAERS Safety Report 8178168 (Version 3)
Quarter: 2013Q1

REPORT INFORMATION
  Report Type: Spontaneous
  Country: US (occurrence: US)
  Receive Date: 20111012
  Receipt Date: 20130320
  Transmission Date: 20140127
  Serious: Yes (Other)
  Sender: FDA-Public Use
  Company Number: US-ROCHE-1001677

PATIENT
  Age: 23 None
  Sex: Male
  Weight: 74.91 kg

DRUGS (1)
  1. ACCUTANE [Suspect]
     Indication: ACNE
     Dosage: FORM: PILLS
     Route: 048
     Dates: start: 19920908, end: 199304

REACTIONS (6)
  - Colitis ulcerative [Unknown]
  - Diverticulum [Unknown]
  - Anxiety [Unknown]
  - Emotional distress [Unknown]
  - Inflammatory bowel disease [Unknown]
  - Haemorrhoids [Unknown]
